FAERS Safety Report 25196300 (Version 1)
Quarter: 2025Q2

REPORT INFORMATION
  Report Type: Spontaneous
  Country: US (occurrence: US)
  Receive Date: 20250415
  Receipt Date: 20250415
  Transmission Date: 20250717
  Serious: No
  Sender: MERCK SHARP AND DOHME
  Company Number: US-009507513-2259097

PATIENT
  Sex: Male

DRUGS (1)
  1. PEMBROLIZUMAB [Suspect]
     Active Substance: PEMBROLIZUMAB
     Indication: Bladder cancer
     Dates: end: 202409

REACTIONS (2)
  - Pruritus [Not Recovered/Not Resolved]
  - Insomnia [Not Recovered/Not Resolved]
